FAERS Safety Report 9144440 (Version 2)
Quarter: 2014Q2

REPORT INFORMATION
  Report Type: Spontaneous
  Country: NO (occurrence: NO)
  Receive Date: 20130306
  Receipt Date: 20140508
  Transmission Date: 20141212
  Serious: Yes (Disabling)
  Sender: FDA-Public Use
  Company Number: NO-BAXTER-2013BAX007640

PATIENT
  Age: 31 Year
  Sex: Female

DRUGS (6)
  1. HOLOXAN 2000 MG PULVER TIL INJEKSJONSV?SKE/INFUSJONSV?SKE, OPPL?SNING [Suspect]
     Indication: CERVIX CARCINOMA STAGE I
     Route: 042
     Dates: start: 20010115, end: 20010116
  2. UROMITEXAN 100 MG/ML INJEKSJONSV?SKE, OPPL?SNING [Suspect]
     Indication: CERVIX CARCINOMA STAGE I
     Route: 042
     Dates: start: 20010115, end: 20010116
  3. CISPLATIN [Suspect]
     Indication: CERVIX CARCINOMA STAGE I
     Route: 042
     Dates: start: 20010115, end: 20010116
  4. 5FU [Suspect]
     Indication: CERVIX CARCINOMA STAGE I
     Route: 042
     Dates: start: 20010115, end: 20010116
  5. FOLIC ACID [Concomitant]
     Indication: CERVIX CARCINOMA
     Route: 042
     Dates: start: 20010115, end: 20010116
  6. FILGRASTIM [Concomitant]
     Indication: PRODUCT USED FOR UNKNOWN INDICATION
     Route: 065

REACTIONS (11)
  - Cognitive disorder [Not Recovered/Not Resolved]
  - Thrombosis [Unknown]
  - Fatigue [None]
  - Stress [None]
  - Lymphoedema [None]
  - Toe amputation [None]
  - International normalised ratio abnormal [None]
  - Abdominal pain upper [None]
  - Depression [None]
  - Encephalopathy [None]
  - Brain injury [None]
